FAERS Safety Report 6112369-0 (Version None)
Quarter: 2009Q1

REPORT INFORMATION
  Report Type: 
  Country: None (occurrence: None)
  Receive Date: 20090311
  Receipt Date: 20090311
  Transmission Date: 20090719
  Serious: Yes (Other)
  Sender: FDA-Public Use
  Company Number: None

PATIENT
  Age: 52 Year
  Sex: Female
  Weight: 56.6996 kg

DRUGS (3)
  1. LYRICA [Suspect]
     Indication: HERPES ZOSTER
     Dosage: 75 MG TWICE DAILY MOUTH
     Dates: start: 20090302
  2. LYRICA [Suspect]
     Indication: HERPES ZOSTER
     Dosage: 75 MG TWICE DAILY MOUTH
     Dates: start: 20090303
  3. PROPRANOLOL [Concomitant]

REACTIONS (6)
  - CONFUSIONAL STATE [None]
  - DEPRESSION [None]
  - DIZZINESS [None]
  - FATIGUE [None]
  - PALPITATIONS [None]
  - THERMAL BURN [None]
